FAERS Safety Report 18216886 (Version 3)
Quarter: 2021Q1

REPORT INFORMATION
  Report Type: Spontaneous
  Country: US (occurrence: US)
  Receive Date: 20200901
  Receipt Date: 20210115
  Transmission Date: 20210419
  Serious: Yes (Other)
  Sender: FDA-Public Use
  Company Number: US-GILEAD-2020-0492315

PATIENT
  Age: 48 Year
  Sex: Female

DRUGS (4)
  1. TRUVADA [Suspect]
     Active Substance: EMTRICITABINE\TENOFOVIR DISOPROXIL FUMARATE
     Indication: HIV INFECTION
     Dosage: UNK
     Route: 048
     Dates: start: 201607, end: 201812
  2. DESCOVY [Concomitant]
     Active Substance: EMTRICITABINE\TENOFOVIR ALAFENAMIDE FUMARATE
  3. BIKTARVY [Concomitant]
     Active Substance: BICTEGRAVIR SODIUM\EMTRICITABINE\TENOFOVIR ALAFENAMIDE FUMARATE
  4. TRUVADA [Suspect]
     Active Substance: EMTRICITABINE\TENOFOVIR DISOPROXIL FUMARATE
     Dosage: UNK
     Route: 048
     Dates: start: 20131220, end: 201812

REACTIONS (12)
  - Bone density decreased [Unknown]
  - Anxiety [Unknown]
  - Anhedonia [Unknown]
  - Emotional distress [Unknown]
  - Bone density abnormal [Unknown]
  - Rib fracture [Recovered/Resolved]
  - Osteonecrosis [Unknown]
  - Multiple fractures [Unknown]
  - Osteochondrosis [Recovered/Resolved]
  - Tooth loss [Unknown]
  - Bone loss [Unknown]
  - Pain [Unknown]

NARRATIVE: CASE EVENT DATE: 20190809
